FAERS Safety Report 5321283-X (Version None)
Quarter: 2007Q2

REPORT INFORMATION
  Report Type: 
  Country: None (occurrence: None)
  Receive Date: 20070507
  Receipt Date: 20070507
  Transmission Date: 20071010
  Serious: Yes (Hospitalization)
  Sender: FDA-Public Use
  Company Number: None

PATIENT
  Age: 15 Year
  Sex: Female
  Weight: 72.5755 kg

DRUGS (1)
  1. MINOCYCLINE 50 MILLIGRAMS RANBAXY P [Suspect]
     Indication: ACNE
     Dosage: ONE CAPSULE -50MG- 2 X PER DAY
     Dates: start: 20070305, end: 20070404

REACTIONS (7)
  - BENIGN INTRACRANIAL HYPERTENSION [None]
  - BLINDNESS UNILATERAL [None]
  - FALL [None]
  - NECK PAIN [None]
  - NUCHAL RIGIDITY [None]
  - PAIN IN EXTREMITY [None]
  - VIRAL INFECTION [None]
